FAERS Safety Report 20078731 (Version 2)
Quarter: 2021Q4

REPORT INFORMATION
  Report Type: Other
  Country: FR (occurrence: FR)
  Receive Date: 20211117
  Receipt Date: 20211130
  Transmission Date: 20220303
  Serious: Yes (Congenital Anomaly)
  Sender: FDA-Public Use
  Company Number: None

PATIENT

DRUGS (2)
  1. MIRTAZAPINE [Suspect]
     Active Substance: MIRTAZAPINE
     Indication: Product used for unknown indication
     Dosage: 22 MILLIGRAM, QD
     Route: 064
     Dates: start: 20210301
  2. BROMAZEPAM [Suspect]
     Active Substance: BROMAZEPAM
     Indication: Product used for unknown indication
     Dosage: 4 MILLIGRAM EVERY WEEK
     Route: 064
     Dates: start: 20210301

REACTIONS (1)
  - Multiple congenital abnormalities [Not Recovered/Not Resolved]

NARRATIVE: CASE EVENT DATE: 20210728
